FAERS Safety Report 10677370 (Version 2)
Quarter: 2015Q1

REPORT INFORMATION
  Report Type: Report from Study
  Country: DE (occurrence: DE)
  Receive Date: 20141226
  Receipt Date: 20150304
  Transmission Date: 20150720
  Serious: Yes (Hospitalization)
  Sender: FDA-Public Use
  Company Number: DE-ABBVIE-14K-062-1325411-00

PATIENT
  Age: 21 Year
  Sex: Female

DRUGS (3)
  1. AZATHIOPRINE. [Concomitant]
     Active Substance: AZATHIOPRINE
     Indication: PRODUCT USED FOR UNKNOWN INDICATION
  2. COLIFOAM [Concomitant]
     Active Substance: HYDROCORTISONE
     Indication: PRODUCT USED FOR UNKNOWN INDICATION
  3. HUMIRA [Suspect]
     Active Substance: ADALIMUMAB
     Indication: COLITIS ULCERATIVE
     Route: 058
     Dates: start: 20130312

REACTIONS (8)
  - Abdominal pain [Unknown]
  - Oophoritis [Recovering/Resolving]
  - Salpingitis [Recovering/Resolving]
  - Lactobacillus test positive [Unknown]
  - Anal fissure [Unknown]
  - Ovarian cyst [Recovered/Resolved]
  - Candida infection [Unknown]
  - Noninfective oophoritis [Recovered/Resolved]

NARRATIVE: CASE EVENT DATE: 201410
